FAERS Safety Report 19279279 (Version 1)
Quarter: 2021Q2

REPORT INFORMATION
  Report Type: Spontaneous
  Country: US (occurrence: US)
  Receive Date: 20210520
  Receipt Date: 20210520
  Transmission Date: 20210717
  Serious: Yes (Other)
  Sender: FDA-Public Use
  Company Number: US-APOTEX-2021AP012124

PATIENT
  Sex: Male

DRUGS (1)
  1. GUANFACINE. [Suspect]
     Active Substance: GUANFACINE
     Indication: PRODUCT USED FOR UNKNOWN INDICATION
     Dosage: UNK
     Route: 065

REACTIONS (7)
  - Recalled product administered [Unknown]
  - Suicidal ideation [Unknown]
  - Hypersensitivity [Unknown]
  - Product contamination [Unknown]
  - Abnormal behaviour [Unknown]
  - Aggression [Unknown]
  - Intermittent explosive disorder [Unknown]
